FAERS Safety Report 5049626-5 (Version None)
Quarter: 2006Q3

REPORT INFORMATION
  Report Type: 
  Country: None (occurrence: None)
  Receive Date: 20060706
  Receipt Date: 20060619
  Transmission Date: 20061208
  Serious: Yes (Other)
  Sender: FDA-Public Use
  Company Number: PHBS2006DE09624

PATIENT
  Age: 8 Year
  Sex: Male

DRUGS (4)
  1. CYCLOSPORINE [Suspect]
     Indication: RENAL TRANSPLANT
     Dates: start: 20030101
  2. PREDNISONE [Suspect]
     Indication: RENAL TRANSPLANT
  3. MYCOPHENOLATE MOFETIL [Suspect]
     Indication: RENAL TRANSPLANT
  4. TACROLIMUS (TACROLIMUS) [Suspect]
     Indication: RENAL TRANSPLANT

REACTIONS (9)
  - ABDOMINAL PAIN [None]
  - B-CELL LYMPHOMA [None]
  - EPSTEIN-BARR VIRUS INFECTION [None]
  - KIDNEY TRANSPLANT REJECTION [None]
  - LYMPHOPROLIFERATIVE DISORDER [None]
  - OESOPHAGEAL CARCINOMA [None]
  - POST PROCEDURAL COMPLICATION [None]
  - TONSILLITIS [None]
  - VOMITING [None]
